FAERS Safety Report 21034327 (Version 1)
Quarter: 2022Q3

REPORT INFORMATION
  Report Type: Report from Study
  Country: DE (occurrence: DE)
  Receive Date: 20220701
  Receipt Date: 20220701
  Transmission Date: 20221026
  Serious: Yes (Other)
  Sender: FDA-Public Use
  Company Number: DE-CELGENE-DEU-20200904484

PATIENT
  Sex: Male
  Weight: 66 kg

DRUGS (3)
  1. DEXAMETHASONE [Suspect]
     Active Substance: DEXAMETHASONE
     Indication: Plasma cell myeloma
     Dosage: UNIT DOSE 20 MG,DURATION 301 DAYS,NOT AVAILABLE
     Route: 048
     Dates: start: 20190819, end: 20200615
  2. REVLIMID [Suspect]
     Active Substance: LENALIDOMIDE
     Indication: Plasma cell myeloma
     Dosage: UNIT DOSE 20 MG,DURATION 300 DAYS,NOT AVAILABLE
     Route: 048
     Dates: start: 20190819, end: 20200614
  3. REVLIMID [Suspect]
     Active Substance: LENALIDOMIDE
     Dosage: DOSE REDUCED
     Route: 048
     Dates: start: 2020

REACTIONS (1)
  - Pancytopenia [Recovering/Resolving]

NARRATIVE: CASE EVENT DATE: 20200617
